FAERS Safety Report 11378980 (Version 1)
Quarter: 2015Q3

REPORT INFORMATION
  Report Type: Spontaneous
  Country: US (occurrence: US)
  Receive Date: 20150811
  Receipt Date: 20150811
  Transmission Date: 20151125
  Serious: No
  Sender: FDA-Public Use
  Company Number: US-ELI_LILLY_AND_COMPANY-US200807003479

PATIENT
  Age: 66 Year
  Sex: Male

DRUGS (3)
  1. PEPCID [Concomitant]
     Active Substance: FAMOTIDINE
  2. CIALIS [Suspect]
     Active Substance: TADALAFIL
     Dosage: 20 MG, UNK
     Route: 048
     Dates: start: 200807
  3. GLUCOSAMINE [Concomitant]
     Active Substance: GLUCOSAMINE

REACTIONS (2)
  - Arthralgia [Recovering/Resolving]
  - Joint swelling [Recovering/Resolving]

NARRATIVE: CASE EVENT DATE: 200807
